FAERS Safety Report 12266066 (Version 1)
Quarter: 2016Q2

REPORT INFORMATION
  Report Type: Spontaneous
  Country: FR (occurrence: FR)
  Receive Date: 20160413
  Receipt Date: 20160413
  Transmission Date: 20160815
  Serious: Yes (Congenital Anomaly)
  Sender: FDA-Public Use
  Company Number: FR-ABBVIE-16P-056-1603696-00

PATIENT
  Sex: Male

DRUGS (1)
  1. DEPAKINE [Suspect]
     Active Substance: VALPROATE SODIUM
     Indication: MATERNAL EXPOSURE TIMING UNSPECIFIED
     Route: 064

REACTIONS (10)
  - Epilepsy [Not Recovered/Not Resolved]
  - Oesophagitis [Unknown]
  - Developmental delay [Not Recovered/Not Resolved]
  - Motor developmental delay [Not Recovered/Not Resolved]
  - Speech disorder developmental [Unknown]
  - Fall [Not Recovered/Not Resolved]
  - Inguinal hernia [Unknown]
  - Intestinal obstruction [Unknown]
  - Lung disorder [Unknown]
  - Foetal exposure during pregnancy [Unknown]
